FAERS Safety Report 20074138 (Version 1)
Quarter: 2021Q4

REPORT INFORMATION
  Report Type: Spontaneous
  Country: US (occurrence: None)
  Receive Date: 20211113
  Receipt Date: 20211113
  Transmission Date: 20220303
  Serious: No
  Sender: FDA-Public Use
  Company Number: None

PATIENT
  Age: 75 Year
  Sex: Female

DRUGS (1)
  1. FORTEO [Suspect]
     Active Substance: TERIPARATIDE
     Indication: Senile osteoporosis
     Dosage: FREQUENCY : DAILY;?
     Route: 058

REACTIONS (6)
  - Bursitis [None]
  - Arthralgia [None]
  - Abdominal pain [None]
  - Bone pain [None]
  - Injection site pain [None]
  - Injection site pain [None]

NARRATIVE: CASE EVENT DATE: 20210705
